FAERS Safety Report 18656822 (Version 1)
Quarter: 2020Q4

REPORT INFORMATION
  Report Type: Spontaneous
  Country: US (occurrence: US)
  Receive Date: 20201223
  Receipt Date: 20201223
  Transmission Date: 20210114
  Serious: Yes (Other)
  Sender: FDA-Public Use
  Company Number: US-AMGEN-USASP2020206765

PATIENT
  Age: 64 Year
  Sex: Female
  Weight: 51.7 kg

DRUGS (6)
  1. METOPROLOL. [Concomitant]
     Active Substance: METOPROLOL
  2. EPOETIN ALFA [Suspect]
     Active Substance: ERYTHROPOIETIN
     Indication: ANAEMIA
     Dosage: 20000 UNIT, QD (FOR 5 DAYS)
     Route: 058
  3. IRON SUCROSE [Concomitant]
     Active Substance: IRON SUCROSE
     Dosage: 200 MILLIGRAM (5 DAILY PARENTERAL INFUSIONS OF 200 MG)
     Route: 065
  4. ALBUTEROL [SALBUTAMOL] [Concomitant]
     Active Substance: ALBUTEROL
  5. B12 [MECOBALAMIN] [Concomitant]
     Dosage: 1000 MICROGRAM
     Route: 030
  6. FOLIC ACID. [Concomitant]
     Active Substance: FOLIC ACID
     Dosage: 1 MILLIGRAM, QD

REACTIONS (3)
  - Off label use [Unknown]
  - Blood loss anaemia [Unknown]
  - Thrombocytopenia [Unknown]
